FAERS Safety Report 22939815 (Version 2)
Quarter: 2023Q4

REPORT INFORMATION
  Report Type: Report from Study
  Country: US (occurrence: US)
  Receive Date: 20230913
  Receipt Date: 20231103
  Transmission Date: 20240109
  Serious: Yes (Hospitalization, Other)
  Sender: FDA-Public Use
  Company Number: US-ABBVIE-5398904

PATIENT
  Age: 35 Year
  Sex: Female

DRUGS (2)
  1. HUMIRA [Suspect]
     Active Substance: ADALIMUMAB
     Indication: Rheumatoid arthritis
     Dosage: FORM STRENGTH WAS 40 MILLIGRAMS?CITRATE FREE
     Route: 058
     Dates: start: 20230907
  2. HUMIRA [Suspect]
     Active Substance: ADALIMUMAB
     Dosage: FORM STRENGTH WAS 40 MILLIGRAMS?CITRATE FREE
     Route: 058
     Dates: start: 2000, end: 2002

REACTIONS (7)
  - Sleeve gastrectomy [Recovered/Resolved]
  - Mammoplasty [Recovered/Resolved]
  - Hiatus hernia [Recovered/Resolved]
  - Abdominoplasty [Recovered/Resolved]
  - Drug hypersensitivity [Unknown]
  - Procedural complication [Recovered/Resolved]
  - Swelling [Unknown]

NARRATIVE: CASE EVENT DATE: 20210601
